FAERS Safety Report 10200661 (Version 1)
Quarter: 2014Q2

REPORT INFORMATION
  Report Type: Spontaneous
  Country: US (occurrence: US)
  Receive Date: 20140528
  Receipt Date: 20140528
  Transmission Date: 20141212
  Serious: No
  Sender: FDA-Public Use
  Company Number: US-TEVA-410690USA

PATIENT
  Sex: Female

DRUGS (2)
  1. SEASONIQUE [Suspect]
  2. ETHINYLESTRADIOL W/LEVONORGESTREL [Suspect]

REACTIONS (5)
  - Emotional disorder [Unknown]
  - Feeling abnormal [Unknown]
  - Migraine [Unknown]
  - Malaise [Unknown]
  - Adverse event [Unknown]
